FAERS Safety Report 9791578 (Version 1)
Quarter: 2014Q1

REPORT INFORMATION
  Report Type: Spontaneous
  Country: FR (occurrence: FR)
  Receive Date: 20140101
  Receipt Date: 20140101
  Transmission Date: 20141002
  Serious: Yes (Life-Threatening, Hospitalization)
  Sender: FDA-Public Use
  Company Number: FR-BRISTOL-MYERS SQUIBB COMPANY-19937036

PATIENT
  Age: 52 Year
  Sex: Male

DRUGS (1)
  1. COUMADINE [Suspect]

REACTIONS (1)
  - Hemiplegia [Unknown]
